FAERS Safety Report 17097017 (Version 1)
Quarter: 2019Q4

REPORT INFORMATION
  Report Type: Spontaneous
  Country: IT (occurrence: IT)
  Receive Date: 20191202
  Receipt Date: 20191202
  Transmission Date: 20200122
  Serious: Yes (Hospitalization)
  Sender: FDA-Public Use
  Company Number: IT-TEVA-2019-IT-1144659

PATIENT
  Age: 81 Year
  Sex: Female

DRUGS (3)
  1. GABAPENTIN MYLAN GENERICS 100 MG CAPSULE RIGIDE [Suspect]
     Active Substance: GABAPENTIN
     Route: 048
  2. MIRTAZAPINA ACTAVIS [Suspect]
     Active Substance: MIRTAZAPINE
     Dosage: 450 MG
     Route: 048
  3. RIFACOL 200 MG COMPRESSE RIVESTITE CON FILM [Suspect]
     Active Substance: RIFAXIMIN
     Indication: DIVERTICULUM
     Route: 048

REACTIONS (2)
  - Sopor [Unknown]
  - Balance disorder [Unknown]

NARRATIVE: CASE EVENT DATE: 20190523
